FAERS Safety Report 14256604 (Version 6)
Quarter: 2018Q4

REPORT INFORMATION
  Report Type: Report from Study
  Country: DE (occurrence: DE)
  Receive Date: 20171206
  Receipt Date: 20181026
  Transmission Date: 20190204
  Serious: Yes (Death, Hospitalization, Other)
  Sender: FDA-Public Use
  Company Number: DE-INCYTE CORPORATION-2017IN010212

PATIENT

DRUGS (9)
  1. JAKAVI [Suspect]
     Active Substance: RUXOLITINIB
     Dosage: 22 MG, BID
     Route: 048
     Dates: start: 20160819, end: 20160901
  2. JAKAVI [Suspect]
     Active Substance: RUXOLITINIB
     Dosage: 20 MG, BID
     Route: 048
     Dates: start: 20160729, end: 20160818
  3. ASPIRIN. [Concomitant]
     Active Substance: ASPIRIN
     Indication: PROPHYLAXIS
     Dosage: 100 MG, UNK
     Route: 048
     Dates: start: 20151015
  4. ALLOPURINOL. [Concomitant]
     Active Substance: ALLOPURINOL
     Indication: PROPHYLAXIS
     Dosage: 100 MG, UNK
     Route: 048
     Dates: start: 20151015
  5. TAMSULOSIN [Concomitant]
     Active Substance: TAMSULOSIN
     Indication: BENIGN PROSTATIC HYPERPLASIA
     Dosage: 0.4 MG, UNK
     Route: 048
     Dates: start: 20140101
  6. JAKAVI [Suspect]
     Active Substance: RUXOLITINIB
     Indication: POLYCYTHAEMIA VERA
     Dosage: 30 MG, UNK
     Route: 048
     Dates: start: 20150817, end: 20150917
  7. JAKAVI [Suspect]
     Active Substance: RUXOLITINIB
     Dosage: UNK
     Route: 048
     Dates: start: 20151016
  8. JAKAVI [Suspect]
     Active Substance: RUXOLITINIB
     Dosage: 15 MG, BID
     Route: 048
     Dates: start: 20160308, end: 20160728
  9. JAKAVI [Suspect]
     Active Substance: RUXOLITINIB
     Dosage: 25 MG, BID
     Route: 048
     Dates: start: 20160902, end: 20170821

REACTIONS (28)
  - Herpes simplex [Unknown]
  - Bronchopulmonary aspergillosis [Fatal]
  - Lung infiltration [Unknown]
  - Acute kidney injury [Recovered/Resolved]
  - Cough [Unknown]
  - Gastritis [Unknown]
  - Steroid diabetes [Unknown]
  - Neutropenia [Unknown]
  - Duodenitis [Unknown]
  - Post procedural complication [Unknown]
  - Chronic kidney disease [Recovered/Resolved]
  - Haemolysis [Unknown]
  - Leukocytosis [Recovered/Resolved]
  - Hepatic failure [Fatal]
  - Colitis [Unknown]
  - Transaminases increased [Unknown]
  - Rash [Unknown]
  - Mucosal inflammation [Unknown]
  - Nausea [Unknown]
  - Diarrhoea [Unknown]
  - Pyrexia [Unknown]
  - Oesophagitis [Unknown]
  - Chronic graft versus host disease [Fatal]
  - Ascites [Unknown]
  - Infection [Unknown]
  - Polycythaemia vera [Unknown]
  - Ulcer [Unknown]
  - Vomiting [Unknown]

NARRATIVE: CASE EVENT DATE: 201509
